FAERS Safety Report 9230015 (Version 1)
Quarter: 2013Q1

REPORT INFORMATION
  Report Type: Spontaneous
  Country: US (occurrence: None)
  Receive Date: 20121022
  Receipt Date: 20121022
  Transmission Date: 20140127
  Serious: Yes (Life-Threatening, Hospitalization)
  Sender: FDA-Public Use
  Company Number: 2011POI057500012

PATIENT
  Age: 69 Year
  Sex: Male

DRUGS (1)
  1. DARVOCET-N [Suspect]
     Route: 048
     Dates: start: 1998, end: 201011

REACTIONS (1)
  - Respiratory failure [None]
